FAERS Safety Report 4346901-4 (Version None)
Quarter: 2004Q1

REPORT INFORMATION
  Report Type: 
  Country: None (occurrence: None)
  Receive Date: 20040325
  Receipt Date: 20031216
  Transmission Date: 20041129
  Serious: No
  Sender: FDA-Public Use
  Company Number: USA031254766

PATIENT
  Age: 69 Year
  Sex: Female

DRUGS (9)
  1. FORTEO [Suspect]
     Indication: OSTEOPOROSIS
     Dates: start: 20031201
  2. LABETALOL HCL [Concomitant]
  3. LANOXIN [Concomitant]
  4. ZYRTEC [Concomitant]
  5. VITAMIN E [Concomitant]
  6. VITAMIN C [Concomitant]
  7. OSCAL (CALCIUM CARBONATE) [Concomitant]
  8. GLUCOSAMINE CHONDROITIN [Concomitant]
  9. .. [Concomitant]

REACTIONS (3)
  - HEADACHE [None]
  - HYPERTENSION [None]
  - SLEEP DISORDER [None]
